FAERS Safety Report 8121827-9 (Version None)
Quarter: 2012Q1

REPORT INFORMATION
  Report Type: 
  Country: None (occurrence: None)
  Receive Date: 20120208
  Receipt Date: 20120202
  Transmission Date: 20120608
  Serious: Yes (Other)
  Sender: FDA-Public Use
  Company Number: US-PFIZER INC-2012030732

PATIENT

DRUGS (4)
  1. ADRIAMYCIN PFS [Suspect]
     Route: 064
  2. VINBLASTINE SULFATE [Suspect]
     Route: 064
  3. BLEOMYCIN [Suspect]
     Route: 064
  4. DACARBAZINE [Suspect]
     Route: 064

REACTIONS (2)
  - MATERNAL EXPOSURE TIMING UNSPECIFIED [None]
  - HYPOGLYCAEMIA NEONATAL [None]
